FAERS Safety Report 13292867 (Version 1)
Quarter: 2017Q1

REPORT INFORMATION
  Report Type: Spontaneous
  Country: US (occurrence: US)
  Receive Date: 20170303
  Receipt Date: 20170303
  Transmission Date: 20170428
  Serious: Yes (Other)
  Sender: FDA-Public Use
  Company Number: US-ASTELLAS-2017US004641

PATIENT
  Age: 67 Year
  Sex: Male
  Weight: 45 kg

DRUGS (2)
  1. LEXISCAN [Suspect]
     Active Substance: REGADENOSON
     Indication: BLOOD PRESSURE INCREASED
     Dosage: UNK UNK, UNKNOWN FREQ.
     Route: 065
  2. LEXISCAN [Suspect]
     Active Substance: REGADENOSON
     Indication: ABASIA

REACTIONS (3)
  - Heart rate decreased [Unknown]
  - Blood pressure decreased [Unknown]
  - Off label use [Unknown]
